FAERS Safety Report 20625639 (Version 1)
Quarter: 2022Q1

REPORT INFORMATION
  Report Type: Spontaneous
  Country: US (occurrence: None)
  Receive Date: 20220323
  Receipt Date: 20220323
  Transmission Date: 20220423
  Serious: No
  Sender: FDA-Public Use
  Company Number: US-ROCHE-2993655

PATIENT
  Sex: Male
  Weight: 79.904 kg

DRUGS (1)
  1. ERIVEDGE [Suspect]
     Active Substance: VISMODEGIB
     Indication: Basal cell carcinoma
     Route: 065
     Dates: start: 20211110

REACTIONS (2)
  - Hypogeusia [Not Recovered/Not Resolved]
  - Pain [Not Recovered/Not Resolved]
